FAERS Safety Report 26158702 (Version 1)
Quarter: 2025Q4

REPORT INFORMATION
  Report Type: Spontaneous
  Country: JP (occurrence: JP)
  Receive Date: 20251215
  Receipt Date: 20251215
  Transmission Date: 20260118
  Serious: Yes (Death)
  Sender: JAZZ
  Company Number: JP-JAZZ PHARMACEUTICALS-2025-JP-028646

PATIENT
  Age: 70 Year
  Sex: Male
  Weight: 71.6 kg

DRUGS (11)
  1. VYXEOS [Suspect]
     Active Substance: CYTARABINE\DAUNORUBICIN
     Indication: Acute myeloid leukaemia
     Dosage: 100 UNITS PER SQUARE METER PER DAY
  2. MEROPENEM [Suspect]
     Active Substance: MEROPENEM
     Indication: Product used for unknown indication
  3. MICAFUNGIN SODIUM [Suspect]
     Active Substance: MICAFUNGIN SODIUM
     Indication: Product used for unknown indication
  4. TEICOPLANIN [Suspect]
     Active Substance: TEICOPLANIN
     Indication: Product used for unknown indication
  5. AZELNIDIPINE\OLMESARTAN MEDOXOMIL [Concomitant]
     Active Substance: AZELNIDIPINE\OLMESARTAN MEDOXOMIL
     Indication: Product used for unknown indication
  6. SITAGLIPTIN PHOSPHATE [Concomitant]
     Active Substance: SITAGLIPTIN PHOSPHATE
     Indication: Product used for unknown indication
  7. MAGNESIUM OXIDE [Concomitant]
     Active Substance: MAGNESIUM OXIDE
     Indication: Product used for unknown indication
  8. NICERGOLINE [Concomitant]
     Active Substance: NICERGOLINE
     Indication: Product used for unknown indication
  9. TOCOPHERYL NICOTINATE, D-.ALPHA. [Concomitant]
     Active Substance: TOCOPHERYL NICOTINATE, D-.ALPHA.
     Indication: Product used for unknown indication
  10. METHYLCOBALAMIN [Concomitant]
     Active Substance: METHYLCOBALAMIN
     Indication: Product used for unknown indication
  11. INSULIN NOS [Concomitant]
     Active Substance: INSULIN NOS
     Indication: Diabetes mellitus

REACTIONS (3)
  - Septic shock [Fatal]
  - Delirium [Unknown]
  - Stenotrophomonas test positive [Unknown]
